FAERS Safety Report 7024337-5 (Version None)
Quarter: 2010Q4

REPORT INFORMATION
  Report Type: 
  Country: None (occurrence: None)
  Receive Date: 20101001
  Receipt Date: 20100922
  Transmission Date: 20110411
  Serious: Yes (Other)
  Sender: FDA-Public Use
  Company Number: JP-PFIZER INC-2010119939

PATIENT
  Age: 46 Year
  Sex: Male

DRUGS (1)
  1. ZOLOFT [Suspect]
     Dosage: 100 MG/DAY
     Route: 048

REACTIONS (2)
  - NASOPHARYNGITIS [None]
  - PHARYNGEAL OEDEMA [None]
